FAERS Safety Report 6116993-0 (Version None)
Quarter: 2009Q1

REPORT INFORMATION
  Report Type: 
  Country: None (occurrence: None)
  Receive Date: 20090314
  Receipt Date: 20090105
  Transmission Date: 20090719
  Serious: No
  Sender: FDA-Public Use
  Company Number: US-ABBOTT-09P-163-0495941-00

PATIENT
  Sex: Female
  Weight: 79.45 kg

DRUGS (2)
  1. HUMIRA [Suspect]
     Indication: PSORIASIS
     Route: 058
     Dates: start: 20081101
  2. HUMIRA [Suspect]
     Dosage: HUMIRA PRE-FILLED SYRINGE, 1 IN 2 WEEKS
     Route: 058
     Dates: start: 20080401

REACTIONS (2)
  - BLISTER [None]
  - STAPHYLOCOCCAL INFECTION [None]
